FAERS Safety Report 6765732-9 (Version None)
Quarter: 2010Q2

REPORT INFORMATION
  Report Type: 
  Country: None (occurrence: None)
  Receive Date: 20100610
  Receipt Date: 20100610
  Transmission Date: 20101027
  Serious: Yes (Hospitalization, Other)
  Sender: FDA-Public Use
  Company Number: None

PATIENT
  Sex: Female
  Weight: 63.5036 kg

DRUGS (1)
  1. LYRICA [Suspect]
     Indication: FIBROMYALGIA
     Dosage: 75 MG 1 A DAY @ NITE

REACTIONS (7)
  - LOCAL SWELLING [None]
  - MOVEMENT DISORDER [None]
  - PERICARDIAL EFFUSION [None]
  - PHARYNGEAL OEDEMA [None]
  - RENAL IMPAIRMENT [None]
  - SWELLING FACE [None]
  - THYROID DISORDER [None]
